FAERS Safety Report 25323190 (Version 4)
Quarter: 2025Q4

REPORT INFORMATION
  Report Type: Report from Study
  Country: EU (occurrence: EU)
  Receive Date: 20250516
  Receipt Date: 20251001
  Transmission Date: 20260118
  Serious: Yes (Hospitalization)
  Sender: ABBVIE
  Company Number: EU-ABBVIE-6284274

PATIENT
  Age: 81 Year
  Sex: Male

DRUGS (3)
  1. FOSCARBIDOPA\FOSLEVODOPA [Suspect]
     Active Substance: FOSCARBIDOPA\FOSLEVODOPA
     Indication: Parkinson^s disease
     Dosage: CR 0.40 ML/H; CRHIGH 0.44 ML/H; CRLOW 0.25 ML/H; ED 0.20 ML
     Route: 058
     Dates: start: 20240917, end: 20250513
  2. FOSCARBIDOPA\FOSLEVODOPA [Suspect]
     Active Substance: FOSCARBIDOPA\FOSLEVODOPA
     Dosage: CR 0.42 ML/H; CR HIGH 0.44 ML/H; CR LOW 0.22 ML/H; ED 0.25 ML?LAST ADMIN DATE: 2025
     Route: 058
     Dates: start: 20250513
  3. FOSCARBIDOPA\FOSLEVODOPA [Suspect]
     Active Substance: FOSCARBIDOPA\FOSLEVODOPA
     Dosage: CR 0.44 ML/H; CR HIGH 0.47 ML/H; CR LOW 0.28 ML/H; ED 0.20 ML ?FIRST ADMIN DATE: 2025
     Route: 058

REACTIONS (4)
  - Syncope [Recovered/Resolved]
  - Hypokinesia [Recovered/Resolved]
  - Musculoskeletal stiffness [Recovered/Resolved]
  - Hypokinesia [Recovered/Resolved]

NARRATIVE: CASE EVENT DATE: 20250510
